FAERS Safety Report 7910544-3 (Version None)
Quarter: 2011Q4

REPORT INFORMATION
  Report Type: 
  Country: None (occurrence: None)
  Receive Date: 20111111
  Receipt Date: 20111101
  Transmission Date: 20120403
  Serious: Yes (Other)
  Sender: FDA-Public Use
  Company Number: PHHY2011RU96872

PATIENT
  Age: 60 Year
  Sex: Female

DRUGS (3)
  1. ASPIRIN [Concomitant]
     Dosage: 100 MG, UNK
  2. CALCEMIN ADVANCE [Concomitant]
  3. MIACALCIN [Suspect]
     Indication: OSTEOPENIA
     Dosage: ONE DOSE ONCE A DAY
     Route: 045

REACTIONS (2)
  - ADRENAL NEOPLASM [None]
  - HYPERADRENALISM [None]
